FAERS Safety Report 13194998 (Version 1)
Quarter: 2017Q1

REPORT INFORMATION
  Report Type: Spontaneous
  Country: BE (occurrence: BE)
  Receive Date: 20170207
  Receipt Date: 20170207
  Transmission Date: 20170428
  Serious: Yes (Death, Other)
  Sender: FDA-Public Use
  Company Number: BE-009507513-1612BEL004335

PATIENT
  Age: 77 Year
  Sex: Female
  Weight: 72 kg

DRUGS (2)
  1. CANCIDAS [Suspect]
     Active Substance: CASPOFUNGIN ACETATE
     Indication: SYSTEMIC CANDIDA
     Dosage: ADMINISTERED 3X70 MG INSTEAD, ONCE
     Route: 042
     Dates: start: 20161206, end: 20161206
  2. CANCIDAS [Suspect]
     Active Substance: CASPOFUNGIN ACETATE
     Indication: SYSTEMIC CANDIDA
     Dosage: UNK, ONCE
     Route: 048
     Dates: start: 20161206

REACTIONS (3)
  - Intestinal perforation [Fatal]
  - Ovarian cancer [Fatal]
  - Accidental overdose [Unknown]

NARRATIVE: CASE EVENT DATE: 20161206
